FAERS Safety Report 7164795-9 (Version None)
Quarter: 2010Q4

REPORT INFORMATION
  Report Type: 
  Country: None (occurrence: None)
  Receive Date: 20101215
  Receipt Date: 20101213
  Transmission Date: 20110411
  Serious: Yes (Death, Other)
  Sender: FDA-Public Use
  Company Number: GR-PFIZER INC-2010170060

PATIENT
  Age: 51 Year
  Sex: Male
  Weight: 180.6 kg

DRUGS (7)
  1. FLUCONAZOLE [Suspect]
     Indication: ABDOMINAL INFECTION
     Dosage: 400 MG, 1X/DAY
     Route: 042
     Dates: start: 20090821, end: 20090828
  2. FLUCONAZOLE [Suspect]
     Dosage: 400 MG, 1X/DAY
     Route: 042
     Dates: start: 20090901, end: 20090904
  3. GENTAMICIN [Suspect]
     Indication: ABDOMINAL INFECTION
     Dosage: 200 MG, 3X/DAY
     Route: 042
     Dates: start: 20090829, end: 20090904
  4. MEROPENEM [Suspect]
     Indication: ABDOMINAL INFECTION
     Dosage: 2 G, 3X/DAY
     Route: 042
     Dates: start: 20090821, end: 20090908
  5. VANCOMYCIN [Suspect]
     Indication: ABDOMINAL INFECTION
     Dosage: 1 G, 2X/DAY
     Route: 042
     Dates: start: 20090821, end: 20090908
  6. COLISTIN [Suspect]
     Indication: ABDOMINAL INFECTION
     Dosage: 1 MILLIONIU, 3X/DAY
     Route: 042
     Dates: start: 20090902, end: 20090905
  7. AMPHOTERICIN B [Suspect]
     Indication: ABDOMINAL INFECTION
     Dosage: 500 MG, 1X/DAY
     Route: 042
     Dates: start: 20090901, end: 20090908

REACTIONS (3)
  - ANASTOMOTIC ULCER PERFORATION [None]
  - MULTI-ORGAN FAILURE [None]
  - PERITONITIS [None]
